FAERS Safety Report 16955854 (Version 1)
Quarter: 2019Q4

REPORT INFORMATION
  Report Type: Spontaneous
  Country: DE (occurrence: DE)
  Receive Date: 20191024
  Receipt Date: 20191024
  Transmission Date: 20200122
  Serious: Yes (Other)
  Sender: FDA-Public Use
  Company Number: DE-TEVA-2019-DE-1127293

PATIENT
  Age: 29 Year
  Sex: Female

DRUGS (1)
  1. COPAXONE [Suspect]
     Active Substance: GLATIRAMER ACETATE
     Indication: MULTIPLE SCLEROSIS
     Dosage: 20 MILLIGRAM DAILY;
     Dates: start: 20081222, end: 200905

REACTIONS (3)
  - Normal newborn [Unknown]
  - Maternal exposure during pregnancy [Unknown]
  - Amniotic fluid volume decreased [Recovered/Resolved]

NARRATIVE: CASE EVENT DATE: 200904
